FAERS Safety Report 7087991-8 (Version None)
Quarter: 2010Q4

REPORT INFORMATION
  Report Type: 
  Country: None (occurrence: None)
  Receive Date: 20101108
  Receipt Date: 20101102
  Transmission Date: 20110411
  Serious: Yes (Hospitalization)
  Sender: FDA-Public Use
  Company Number: FR-BRISTOL-MYERS SQUIBB COMPANY-15367030

PATIENT
  Age: 88 Year
  Sex: Female

DRUGS (4)
  1. IRBESARTAN AND HYDROCHLOROTHIAZIDE [Suspect]
     Indication: HYPERTENSION
     Route: 048
     Dates: end: 20100824
  2. VASTAREL [Concomitant]
  3. OMEPRAZOLE [Concomitant]
  4. PRAVASTATIN SODIUM [Concomitant]

REACTIONS (4)
  - FALL [None]
  - FRACTURE [None]
  - HYPERKALAEMIA [None]
  - ORTHOSTATIC HYPOTENSION [None]
